FAERS Safety Report 10371972 (Version 5)
Quarter: 2014Q3

REPORT INFORMATION
  Report Type: Spontaneous
  Country: JP (occurrence: JP)
  Receive Date: 20140808
  Receipt Date: 20140929
  Transmission Date: 20150326
  Serious: Yes (Death, Hospitalization)
  Sender: FDA-Public Use
  Company Number: JP-ASTELLAS-2014JP017380AA

PATIENT
  Age: 77 Year
  Sex: Male
  Weight: 36 kg

DRUGS (18)
  1. DECADRON [Concomitant]
     Active Substance: DEXAMETHASONE
     Indication: PROSTATE CANCER
     Route: 048
     Dates: start: 2013, end: 20140804
  2. LYRICA [Concomitant]
     Active Substance: PREGABALIN
     Indication: PROSTATE CANCER
     Route: 048
     Dates: start: 20131202, end: 20140804
  3. ONEALFA [Concomitant]
     Active Substance: ALFACALCIDOL
     Indication: PROSTATE CANCER
     Dosage: 0.5 ?G, ONCE DAILY
     Route: 048
     Dates: start: 20140127, end: 20140804
  4. OXINORM                            /00045603/ [Concomitant]
     Indication: PROSTATE CANCER
     Route: 048
     Dates: start: 20130918, end: 20140804
  5. NEXIUM [Concomitant]
     Active Substance: ESOMEPRAZOLE MAGNESIUM
     Indication: PROSTATE CANCER
     Route: 048
     Dates: start: 20131227, end: 20140804
  6. ASPARA-CA [Concomitant]
     Active Substance: CALCIUM ASPARTATE
     Indication: PROSTATE CANCER
     Route: 048
     Dates: start: 20140127, end: 20140804
  7. EQUA [Concomitant]
     Active Substance: VILDAGLIPTIN
     Indication: DIABETES MELLITUS
     Route: 048
     Dates: start: 20121112, end: 20140804
  8. CALONAL [Concomitant]
     Active Substance: ACETAMINOPHEN
     Indication: PROSTATE CANCER
     Route: 048
     Dates: start: 20130918, end: 20140804
  9. PURSENNID                          /00142207/ [Concomitant]
     Active Substance: SENNOSIDES A AND B CALCIUM
     Indication: CONSTIPATION
  10. XTANDI [Suspect]
     Active Substance: ENZALUTAMIDE
     Indication: HORMONE-REFRACTORY PROSTATE CANCER
     Route: 048
     Dates: start: 20140616, end: 20140804
  11. PURSENNID                          /00142207/ [Concomitant]
     Active Substance: SENNOSIDES A AND B CALCIUM
     Indication: PROSTATE CANCER
     Route: 048
     Dates: start: 20130918, end: 20140804
  12. ZOMETA [Concomitant]
     Active Substance: ZOLEDRONIC ACID
     Indication: PROSTATE CANCER
     Dosage: UNK UNK, UNKNOWN FREQ.
     Route: 065
     Dates: start: 20131114
  13. ZOMETA [Concomitant]
     Active Substance: ZOLEDRONIC ACID
     Route: 041
     Dates: start: 20140714, end: 20140714
  14. HARNAL [Suspect]
     Active Substance: TAMSULOSIN HYDROCHLORIDE
     Indication: DYSURIA
  15. OXYCONTIN [Concomitant]
     Active Substance: OXYCODONE HYDROCHLORIDE
     Indication: PROSTATE CANCER
     Route: 048
     Dates: start: 20130918, end: 20140804
  16. PROSEXOL [Concomitant]
     Active Substance: ETHINYL ESTRADIOL
     Indication: PRODUCT USED FOR UNKNOWN INDICATION
     Dosage: UNK UNK, UNKNOWN FREQ.
     Route: 065
     Dates: start: 20130918
  17. HARNAL [Suspect]
     Active Substance: TAMSULOSIN HYDROCHLORIDE
     Indication: PROSTATE CANCER
     Dosage: 0.2 MG, ONCE DAILY
     Route: 048
     Dates: start: 20140421, end: 20140804
  18. ODYNE [Concomitant]
     Active Substance: FLUTAMIDE
     Indication: ANTIANDROGEN THERAPY
     Dosage: UNK UNK, UNKNOWN FREQ.
     Route: 065
     Dates: start: 20120720

REACTIONS (6)
  - Decreased appetite [Recovering/Resolving]
  - Hypothermia [Not Recovered/Not Resolved]
  - Off label use [Unknown]
  - Hepatic function abnormal [Fatal]
  - Fatigue [Recovering/Resolving]
  - Asthenia [Fatal]

NARRATIVE: CASE EVENT DATE: 20140421
